FAERS Safety Report 15100679 (Version 1)
Quarter: 2018Q2

REPORT INFORMATION
  Report Type: Spontaneous
  Country: US (occurrence: US)
  Receive Date: 20180611
  Receipt Date: 20180611
  Transmission Date: 20180711
  Serious: Yes (Other)
  Sender: FDA-Public Use
  Company Number: None

PATIENT
  Age: 58 Year
  Sex: Female
  Weight: 82.55 kg

DRUGS (5)
  1. CHOLECALCIFEROL (VITAMIN D3) [Concomitant]
  2. GLEEVEC [Suspect]
     Active Substance: IMATINIB MESYLATE
     Indication: CHRONIC MYELOID LEUKAEMIA
     Dosage: 100 MG TAKE 3 TABLETS DAILY
  3. SUMATRIPTAN (IMITREX) [Concomitant]
  4. HYDROCHLOROTHIAZIDE (HYDRODIURIL) [Concomitant]
  5. SYNTHROID [Concomitant]
     Active Substance: LEVOTHYROXINE SODIUM

REACTIONS (2)
  - Headache [None]
  - Product substitution issue [None]
